FAERS Safety Report 7478405-4 (Version None)
Quarter: 2011Q2

REPORT INFORMATION
  Report Type: 
  Country: None (occurrence: None)
  Receive Date: 20110513
  Receipt Date: 20100611
  Transmission Date: 20111010
  Serious: Yes (Other)
  Sender: FDA-Public Use
  Company Number: US-PFIZER INC-2010073600

PATIENT
  Age: 77 Year
  Sex: Male

DRUGS (3)
  1. PLAVIX [Suspect]
     Indication: STENT PLACEMENT
  2. CELEBREX [Suspect]
     Dosage: UNK
  3. PLAVIX [Suspect]
     Indication: VASCULAR GRAFT
     Dosage: 75 MG, DAILY
     Route: 048

REACTIONS (4)
  - GASTROINTESTINAL ULCER [None]
  - FLATULENCE [None]
  - ERUCTATION [None]
  - NAUSEA [None]
